FAERS Safety Report 6025024-2 (Version None)
Quarter: 2008Q4

REPORT INFORMATION
  Report Type: 
  Country: None (occurrence: None)
  Receive Date: 20081231
  Receipt Date: 20081224
  Transmission Date: 20090506
  Serious: Yes (Hospitalization)
  Sender: FDA-Public Use
  Company Number: FR-JNJFOC-20081206781

PATIENT
  Age: 58 Year
  Sex: Female

DRUGS (9)
  1. TAVANIC [Suspect]
     Indication: DRUG USE FOR UNKNOWN INDICATION
     Route: 065
  2. NEXIUM [Suspect]
     Indication: PROPHYLAXIS
     Route: 048
  3. IMOVANE [Concomitant]
     Indication: SLEEP DISORDER
     Route: 048
  4. LASILIX [Concomitant]
     Indication: CARDIAC FAILURE
     Route: 065
  5. KARDEGIC [Concomitant]
     Indication: CARDIAC FAILURE
     Route: 048
  6. ATARAX [Concomitant]
     Indication: ANXIETY
     Route: 048
  7. LEXOMIL [Concomitant]
     Route: 048
  8. EUPRASSYL [Concomitant]
     Indication: HYPERTENSION
     Route: 048
  9. HYPERIUM [Concomitant]
     Indication: HYPERTENSION
     Route: 048

REACTIONS (2)
  - CHOLESTASIS [None]
  - EOSINOPHILIA [None]
